FAERS Safety Report 21653050 (Version 1)
Quarter: 2022Q4

REPORT INFORMATION
  Report Type: Spontaneous
  Country: US (occurrence: None)
  Receive Date: 20221125
  Receipt Date: 20221125
  Transmission Date: 20230113
  Serious: No
  Sender: FDA-Public Use
  Company Number: None

PATIENT
  Sex: Female
  Weight: 72.57 kg

DRUGS (20)
  1. PROMACTA [Suspect]
     Active Substance: ELTROMBOPAG OLAMINE
     Indication: Neoplasm malignant
     Dosage: FREQUENCY : EVERY OTHER DAY;?
     Route: 048
  2. ALBUTEROL [Concomitant]
  3. AMLODIPINE [Concomitant]
  4. ATORVASTATIN [Concomitant]
     Active Substance: ATORVASTATIN
  5. AZATHIOPRINE [Concomitant]
  6. BUTALBITAL [Concomitant]
  7. ASPIRIN [Concomitant]
     Active Substance: ASPIRIN
  8. CAFFEINE [Concomitant]
  9. DULOXETINE [Concomitant]
     Active Substance: DULOXETINE
  10. FOLIC ACID [Concomitant]
     Active Substance: FOLIC ACID
  11. HYDROXYCHLOROQUINE [Concomitant]
  12. NORCO [Concomitant]
  13. PLAVIX [Concomitant]
  14. PREDNISONE [Concomitant]
     Active Substance: PREDNISONE
  15. RABEPRAZOLE [Concomitant]
     Active Substance: RABEPRAZOLE
  16. TOPIRAMATE [Concomitant]
     Active Substance: TOPIRAMATE
  17. TOVIAZ [Concomitant]
  18. TRELEGY ELLIPTA [Concomitant]
     Active Substance: FLUTICASONE FUROATE\UMECLIDINIUM BROMIDE\VILANTEROL TRIFENATATE
  19. VITAMIN D2 [Concomitant]
     Active Substance: ERGOCALCIFEROL
  20. XIIDRA [Concomitant]
     Active Substance: LIFITEGRAST

REACTIONS (1)
  - Pneumonia [None]
